FAERS Safety Report 19665828 (Version 3)
Quarter: 2021Q3

REPORT INFORMATION
  Report Type: Spontaneous
  Country: PT (occurrence: PT)
  Receive Date: 20210806
  Receipt Date: 20210830
  Transmission Date: 20211014
  Serious: Yes (Hospitalization)
  Sender: FDA-Public Use
  Company Number: PT-AUROBINDO-AUR-APL-2021-033987

PATIENT
  Age: 68 Year
  Sex: Male

DRUGS (5)
  1. ZOLEDRONIC ACID [Interacting]
     Active Substance: ZOLEDRONIC ACID
     Indication: HYPERCALCAEMIA
     Dosage: 4 MILLIGRAM
     Route: 065
  2. VITAMIN D [Concomitant]
     Active Substance: VITAMIN D NOS
     Indication: HYPERCALCAEMIA
     Dosage: 9.5 NANOGRAM PER MILLIGRAM
     Route: 065
  3. CALCITRIOL. [Concomitant]
     Active Substance: CALCITRIOL
     Indication: HYPERCALCAEMIA
     Dosage: 12.3 NANOGRAM PER MILLIGRAM
     Route: 065
  4. CINACALCET. [Suspect]
     Active Substance: CINACALCET
     Indication: HYPERPARATHYROIDISM
     Dosage: 30 MILLIGRAM, ONCE A DAY
     Route: 048
  5. CINACALCET. [Interacting]
     Active Substance: CINACALCET
     Indication: HYPERPARATHYROIDISM PRIMARY

REACTIONS (2)
  - Hypocalcaemia [Recovered/Resolved]
  - Potentiating drug interaction [Unknown]
